FAERS Safety Report 21358748 (Version 1)
Quarter: 2022Q3

REPORT INFORMATION
  Report Type: Spontaneous
  Country: US (occurrence: None)
  Receive Date: 20220920
  Receipt Date: 20220920
  Transmission Date: 20221027
  Serious: Yes (Other)
  Sender: FDA-Public Use
  Company Number: None

PATIENT
  Sex: Male

DRUGS (9)
  1. SIMPONI [Suspect]
     Active Substance: GOLIMUMAB
     Indication: Psoriatic arthropathy
     Dosage: OTHER QUANTITY : 50 MG/0.5ML;?FREQUENCY : MONTHLY;?
     Route: 058
     Dates: start: 20220406
  2. SIMPONI [Suspect]
     Active Substance: GOLIMUMAB
     Dosage: OTHER QUANTITY : 1 PEN;?FREQUENCY : MONTHLY;?
     Route: 058
  3. BUMETANIDE [Concomitant]
  4. FAMOTIDINE [Concomitant]
  5. IRON [Concomitant]
     Active Substance: IRON
  6. LISINOPRIL [Concomitant]
     Active Substance: LISINOPRIL
  7. LORATADINE [Concomitant]
     Active Substance: LORATADINE
  8. NEXIUM [Concomitant]
     Active Substance: ESOMEPRAZOLE MAGNESIUM
  9. PANTOPRAZOLE [Concomitant]
     Active Substance: PANTOPRAZOLE

REACTIONS (1)
  - Cardiac failure congestive [None]
